FAERS Safety Report 18230018 (Version 1)
Quarter: 2020Q3

REPORT INFORMATION
  Report Type: Spontaneous
  Country: ZA (occurrence: ZA)
  Receive Date: 20200903
  Receipt Date: 20200903
  Transmission Date: 20201103
  Serious: Yes (Hospitalization, Other)
  Sender: FDA-Public Use
  Company Number: NVSC2020ZA241171

PATIENT
  Age: 47 Year
  Sex: Female

DRUGS (1)
  1. ESTRADOT [Suspect]
     Active Substance: ESTRADIOL
     Indication: HORMONE REPLACEMENT THERAPY
     Dosage: 100 UG, ONE TWICE PER WEEK
     Route: 003

REACTIONS (3)
  - Sleep apnoea syndrome [Unknown]
  - Loss of consciousness [Unknown]
  - Dizziness [Unknown]
